FAERS Safety Report 8460479-5 (Version None)
Quarter: 2012Q2

REPORT INFORMATION
  Report Type: 
  Country: None (occurrence: None)
  Receive Date: 20120622
  Receipt Date: 20120612
  Transmission Date: 20120825
  Serious: No
  Sender: FDA-Public Use
  Company Number: US-ASTRAZENECA-2012SE05017

PATIENT
  Age: 42 Year
  Sex: Female

DRUGS (5)
  1. SEROQUEL XR [Suspect]
     Route: 048
  2. SEROQUEL XR [Suspect]
     Indication: DEPRESSION
     Route: 048
  3. PRISTIQ [Concomitant]
  4. CYMBALTA [Concomitant]
  5. PROZAC [Concomitant]

REACTIONS (2)
  - BIPOLAR DISORDER [None]
  - DRUG HYPERSENSITIVITY [None]
